FAERS Safety Report 4681984-3 (Version None)
Quarter: 2005Q2

REPORT INFORMATION
  Report Type: 
  Country: None (occurrence: None)
  Receive Date: 20050526
  Receipt Date: 20050329
  Transmission Date: 20051028
  Serious: Yes (Other)
  Sender: FDA-Public Use
  Company Number: US-JNJFOC-20050307530

PATIENT
  Age: 26 Year
  Sex: Male
  Weight: 165.5629 kg

DRUGS (4)
  1. RISPERDAL [Suspect]
     Indication: SCHIZOPHRENIA, PARANOID TYPE
     Dosage: 25 MG, IN 2 WEEK, INTRAMUSCULAR; 37.5 MG, IN 2 WEEK, INTRA-MUSCULAR
     Route: 030
     Dates: start: 20040601, end: 20050201
  2. RISPERDAL [Suspect]
     Indication: SCHIZOPHRENIA, PARANOID TYPE
     Dosage: 25 MG, IN 2 WEEK, INTRAMUSCULAR; 37.5 MG, IN 2 WEEK, INTRA-MUSCULAR
     Route: 030
     Dates: start: 20050201
  3. RISPERDAL [Suspect]
     Indication: SCHIZOPHRENIA, PARANOID TYPE
     Dosage: ORAL
     Route: 048
     Dates: start: 20010701, end: 20050101
  4. SEROQUEL [Concomitant]

REACTIONS (3)
  - BLOOD PROLACTIN INCREASED [None]
  - GRIMACING [None]
  - WEIGHT INCREASED [None]
